FAERS Safety Report 6192945-X (Version None)
Quarter: 2009Q2

REPORT INFORMATION
  Report Type: 
  Country: None (occurrence: None)
  Receive Date: 20090518
  Receipt Date: 20090511
  Transmission Date: 20091009
  Serious: Yes (Hospitalization)
  Sender: FDA-Public Use
  Company Number: US-BIOGENIDEC-2008BI003353

PATIENT
  Age: 60 Year
  Sex: Female

DRUGS (4)
  1. AVONEX [Suspect]
     Indication: MULTIPLE SCLEROSIS
     Route: 030
     Dates: start: 20060901
  2. AVONEX [Suspect]
     Route: 030
     Dates: start: 20060901
  3. AVONEX [Suspect]
     Route: 030
     Dates: start: 20000101, end: 20060301
  4. AVONEX [Suspect]
     Route: 030
     Dates: end: 20080301

REACTIONS (1)
  - AORTIC STENOSIS [None]
